FAERS Safety Report 19399959 (Version 1)
Quarter: 2021Q2

REPORT INFORMATION
  Report Type: Spontaneous
  Country: BE (occurrence: BE)
  Receive Date: 20210610
  Receipt Date: 20210610
  Transmission Date: 20210717
  Serious: Yes (Other)
  Sender: FDA-Public Use
  Company Number: BE-SA-2021SA183226

PATIENT
  Age: 51 Year
  Sex: Female

DRUGS (1)
  1. CABAZITAXEL [Suspect]
     Active Substance: CABAZITAXEL
     Indication: ADENOID CYSTIC CARCINOMA OF SALIVARY GLAND
     Dosage: UNK UNK, QCY
     Dates: start: 201009, end: 201010

REACTIONS (2)
  - Transaminases increased [Unknown]
  - Hepatotoxicity [Unknown]
